FAERS Safety Report 6800650-9 (Version None)
Quarter: 2010Q2

REPORT INFORMATION
  Report Type: 
  Country: None (occurrence: None)
  Receive Date: 20100629
  Receipt Date: 20100311
  Transmission Date: 20101027
  Serious: Yes (Hospitalization, Other)
  Sender: FDA-Public Use
  Company Number: US-ASTRAZENECA-2010SE04008

PATIENT
  Age: 26 Year
  Sex: Female
  Weight: 71.2 kg

DRUGS (20)
  1. SEROQUEL [Suspect]
     Indication: ANXIETY
     Dosage: 50 TO 200 MG
     Route: 048
     Dates: start: 20030314
  2. SEROQUEL [Suspect]
     Indication: OBSESSIVE-COMPULSIVE DISORDER
     Dosage: 50 TO 200 MG
     Route: 048
     Dates: start: 20030314
  3. SEROQUEL [Suspect]
     Indication: ASPERGER'S DISORDER
     Dosage: 50 TO 200 MG
     Route: 048
     Dates: start: 20030314
  4. SEROQUEL [Suspect]
     Dosage: 25 MG TO 600 MG DAILY
     Route: 048
     Dates: start: 20030401, end: 20080701
  5. SEROQUEL [Suspect]
     Dosage: 25 MG TO 600 MG DAILY
     Route: 048
     Dates: start: 20030401, end: 20080701
  6. SEROQUEL [Suspect]
     Dosage: 25 MG TO 600 MG DAILY
     Route: 048
     Dates: start: 20030401, end: 20080701
  7. RISPERDAL [Concomitant]
     Dosage: 1 MG TO  2MG ONCE A DAY
     Dates: start: 19990101, end: 20020101
  8. EFFEXOR [Concomitant]
     Dates: start: 19990101, end: 20020101
  9. EFFEXOR [Concomitant]
     Dates: start: 20020315
  10. ZOLOFT [Concomitant]
     Indication: DEPRESSION
     Dates: start: 19990101, end: 20020101
  11. REMERON [Concomitant]
     Dates: start: 19990101, end: 20020101
  12. LEXAPRO [Concomitant]
     Indication: DEPRESSION
  13. TRILAFON [Concomitant]
     Dates: start: 20021201, end: 20030101
  14. TRILAFON [Concomitant]
     Dosage: 8 TO 16 MG
     Dates: start: 20030314
  15. PROVACHOL [Concomitant]
     Indication: BLOOD CHOLESTEROL INCREASED
     Dates: start: 20040101
  16. PROVACHOL [Concomitant]
     Indication: HYPERLIPIDAEMIA
     Dates: start: 20040101
  17. PROVACHOL [Concomitant]
     Indication: BLOOD TRIGLYCERIDES INCREASED
     Dates: start: 20040101
  18. PROVACHOL [Concomitant]
     Dates: start: 20020315
  19. PROVACHOL [Concomitant]
     Dates: start: 20020315
  20. PROVACHOL [Concomitant]
     Dates: start: 20020315

REACTIONS (10)
  - BLOOD CHOLESTEROL INCREASED [None]
  - BLOOD TRIGLYCERIDES INCREASED [None]
  - CONSTIPATION [None]
  - DIABETIC COMPLICATION [None]
  - HYPERLIPIDAEMIA [None]
  - INSULIN RESISTANCE [None]
  - IRRITABLE BOWEL SYNDROME [None]
  - OBESITY [None]
  - RECTAL PROLAPSE [None]
  - TYPE 2 DIABETES MELLITUS [None]
